FAERS Safety Report 20170397 (Version 2)
Quarter: 2022Q1

REPORT INFORMATION
  Report Type: Spontaneous
  Country: US (occurrence: None)
  Receive Date: 20211210
  Receipt Date: 20220121
  Transmission Date: 20220423
  Serious: Yes (Other)
  Sender: FDA-Public Use
  Company Number: 2021A855729

PATIENT
  Sex: Male
  Weight: 75.8 kg

DRUGS (4)
  1. FASENRA [Suspect]
     Active Substance: BENRALIZUMAB
     Indication: Asthma
     Dosage: 30MG/ML EVERY EIGHT WEEKS
     Route: 058
  2. FASENRA [Suspect]
     Active Substance: BENRALIZUMAB
     Indication: Lung disorder
     Dosage: 30MG/ML EVERY EIGHT WEEKS
     Route: 058
  3. FASENRA [Suspect]
     Active Substance: BENRALIZUMAB
     Indication: Asthma
     Dosage: 30MG/ML EVERY EIGHT WEEKS
     Route: 058
  4. FASENRA [Suspect]
     Active Substance: BENRALIZUMAB
     Indication: Lung disorder
     Dosage: 30MG/ML EVERY EIGHT WEEKS
     Route: 058

REACTIONS (8)
  - Diabetes mellitus inadequate control [Unknown]
  - Wheezing [Unknown]
  - Wrong technique in device usage process [Unknown]
  - Product dose omission issue [Unknown]
  - Device dispensing error [Unknown]
  - Device use issue [Unknown]
  - Device defective [Unknown]
  - Device leakage [Unknown]
